FAERS Safety Report 24939978 (Version 1)
Quarter: 2025Q1

REPORT INFORMATION
  Report Type: Spontaneous
  Country: HU (occurrence: HU)
  Receive Date: 20250207
  Receipt Date: 20250207
  Transmission Date: 20250408
  Serious: Yes (Other)
  Sender: ROCHE
  Company Number: HU-ROCHE-10000200771

PATIENT
  Age: 54 Year
  Sex: Female

DRUGS (2)
  1. PHESGO [Suspect]
     Active Substance: HYALURONIDASE-ZZXF\PERTUZUMAB\TRASTUZUMAB
     Indication: Product used for unknown indication
     Route: 065
  2. LETROZOLE [Suspect]
     Active Substance: LETROZOLE
     Indication: Product used for unknown indication
     Route: 065

REACTIONS (8)
  - Defaecation urgency [Unknown]
  - Fatigue [Unknown]
  - Joint instability [Unknown]
  - Impaired work ability [Unknown]
  - Mobility decreased [Unknown]
  - Diarrhoea [Unknown]
  - Arthralgia [Unknown]
  - Arthralgia [Unknown]
